FAERS Safety Report 9818490 (Version 1)
Quarter: 2014Q1

REPORT INFORMATION
  Report Type: Spontaneous
  Country: US (occurrence: US)
  Receive Date: 20140115
  Receipt Date: 20140115
  Transmission Date: 20141002
  Serious: No
  Sender: FDA-Public Use
  Company Number: US-009507513-1401USA005222

PATIENT
  Age: 55 Year
  Sex: Female

DRUGS (2)
  1. ZETIA [Suspect]
     Indication: BLOOD CHOLESTEROL INCREASED
     Dosage: 10 MG, QPM
     Route: 048
     Dates: start: 20131129
  2. SYNTHROID [Concomitant]

REACTIONS (4)
  - Pyrexia [Unknown]
  - Pain [Unknown]
  - Headache [Unknown]
  - Fatigue [Unknown]
